FAERS Safety Report 6610058-7 (Version None)
Quarter: 2010Q1

REPORT INFORMATION
  Report Type: 
  Country: None (occurrence: None)
  Receive Date: 20100302
  Receipt Date: 20100217
  Transmission Date: 20100710
  Serious: Yes (Hospitalization)
  Sender: FDA-Public Use
  Company Number: JP-ROCHE-687432

PATIENT
  Age: 58 Year
  Sex: Female

DRUGS (1)
  1. PEGASYS [Suspect]
     Route: 058
     Dates: start: 20080620

REACTIONS (2)
  - AUTOIMMUNE HEPATITIS [None]
  - AUTOIMMUNE THYROIDITIS [None]
